FAERS Safety Report 6444988-6 (Version None)
Quarter: 2009Q4

REPORT INFORMATION
  Report Type: 
  Country: None (occurrence: None)
  Receive Date: 20091118
  Receipt Date: 20091113
  Transmission Date: 20100525
  Serious: Yes (Death)
  Sender: FDA-Public Use
  Company Number: SK-CELGENEUS-260-50794-09110741

PATIENT
  Sex: Male

DRUGS (1)
  1. VIDAZA [Suspect]
     Indication: MYELODYSPLASTIC SYNDROME
     Route: 058
     Dates: start: 20090901

REACTIONS (2)
  - ACUTE MYELOID LEUKAEMIA [None]
  - MYELODYSPLASTIC SYNDROME TRANSFORMATION [None]
